FAERS Safety Report 25119020 (Version 1)
Quarter: 2025Q1

REPORT INFORMATION
  Report Type: Spontaneous
  Country: US (occurrence: US)
  Receive Date: 20250325
  Receipt Date: 20250325
  Transmission Date: 20250408
  Serious: No
  Sender: SANOFI AVENTIS
  Company Number: US-SA-2025SA085955

PATIENT
  Age: 73 Year
  Sex: Female

DRUGS (5)
  1. DUPIXENT [Suspect]
     Active Substance: DUPILUMAB
     Indication: Dermatitis atopic
     Dosage: 300 MG, QOW
     Route: 058
  2. BUPROPION HYDROCHLORIDE [Concomitant]
     Active Substance: BUPROPION HYDROCHLORIDE
  3. DUTASTERIDE [Concomitant]
     Active Substance: DUTASTERIDE
  4. FLUCONAZOLE [Concomitant]
     Active Substance: FLUCONAZOLE
  5. LISINOPRIL [Concomitant]
     Active Substance: LISINOPRIL

REACTIONS (2)
  - Lip swelling [Not Recovered/Not Resolved]
  - Injection site erythema [Not Recovered/Not Resolved]
